FAERS Safety Report 5119063-3 (Version None)
Quarter: 2006Q3

REPORT INFORMATION
  Report Type: 
  Country: None (occurrence: None)
  Receive Date: 20060927
  Receipt Date: 20060915
  Transmission Date: 20061208
  Serious: Yes (Disabling)
  Sender: FDA-Public Use
  Company Number: GXBR2006US01537

PATIENT
  Age: 62 Year
  Sex: Male
  Weight: 77.1 kg

DRUGS (4)
  1. AMIODARONE HCL [Suspect]
     Indication: ATRIAL FIBRILLATION
     Dosage: 200 MG, BID, ORAL
     Route: 048
     Dates: start: 20060321, end: 20060708
  2. TOPROL-XL [Concomitant]
  3. WARFARIN SODIUM [Concomitant]
  4. NEXIUM [Concomitant]

REACTIONS (8)
  - ASTHENOPIA [None]
  - CORNEAL DEPOSITS [None]
  - OPTIC ISCHAEMIC NEUROPATHY [None]
  - PHOTOPHOBIA [None]
  - PUPILLARY DISORDER [None]
  - RETINAL EXUDATES [None]
  - RETINAL HAEMORRHAGE [None]
  - ROSACEA [None]
